FAERS Safety Report 21391190 (Version 1)
Quarter: 2022Q3

REPORT INFORMATION
  Report Type: Spontaneous
  Country: US (occurrence: US)
  Receive Date: 20220929
  Receipt Date: 20220929
  Transmission Date: 20221027
  Serious: No
  Sender: FDA-Public Use
  Company Number: US-BAYER-2022A134513

PATIENT
  Age: 69 Year
  Sex: Female

DRUGS (1)
  1. MIRALAX [Suspect]
     Active Substance: POLYETHYLENE GLYCOL 3350
     Indication: Gastrointestinal disorder
     Dosage: 1 CAP FULL DAILY IN 4 DAYS
     Route: 048
     Dates: start: 20220921, end: 20220924

REACTIONS (1)
  - Drug ineffective [Not Recovered/Not Resolved]
